FAERS Safety Report 11089310 (Version 2)
Quarter: 2015Q2

REPORT INFORMATION
  Report Type: Spontaneous
  Country: BR (occurrence: BR)
  Receive Date: 20150505
  Receipt Date: 20150528
  Transmission Date: 20150821
  Serious: Yes (Disabling, Other)
  Sender: FDA-Public Use
  Company Number: BR-THROMBOGENICS NV-SPO-2014-1426

PATIENT
  Age: 39 Year
  Sex: Female

DRUGS (1)
  1. JETREA [Suspect]
     Active Substance: OCRIPLASMIN
     Indication: MACULAR HOLE
     Dosage: 0.125 MG, ONE TIME DOSE
     Route: 031
     Dates: start: 20141110, end: 20141110

REACTIONS (21)
  - Blindness unilateral [Not Recovered/Not Resolved]
  - Halo vision [Unknown]
  - Photopsia [Unknown]
  - Eye pain [Unknown]
  - Vitreous floaters [Unknown]
  - Drug ineffective for unapproved indication [Unknown]
  - Visual impairment [Unknown]
  - Visual acuity reduced [Not Recovered/Not Resolved]
  - Pupillary block [Unknown]
  - Lens dislocation [Unknown]
  - Visual field defect [Unknown]
  - Chromatopsia [Unknown]
  - Off label use [Unknown]
  - Metamorphopsia [Unknown]
  - Night blindness [Unknown]
  - Headache [Unknown]
  - Conjunctival hyperaemia [Unknown]
  - Photophobia [Unknown]
  - Atrophy of globe [Recovered/Resolved with Sequelae]
  - Retinal detachment [Unknown]
  - Vision blurred [Unknown]

NARRATIVE: CASE EVENT DATE: 20141110
